FAERS Safety Report 12759688 (Version 4)
Quarter: 2016Q4

REPORT INFORMATION
  Report Type: Report from Study
  Country: BR (occurrence: BR)
  Receive Date: 20160919
  Receipt Date: 20161018
  Transmission Date: 20170207
  Serious: Yes (Hospitalization, Other)
  Sender: FDA-Public Use
  Company Number: BR-JNJFOC-20160912695

PATIENT
  Age: 18 Year
  Sex: Female
  Weight: 46.1 kg

DRUGS (5)
  1. REMICADE [Suspect]
     Active Substance: INFLIXIMAB
     Indication: CROHN^S DISEASE
     Route: 042
  2. REMICADE [Suspect]
     Active Substance: INFLIXIMAB
     Indication: CROHN^S DISEASE
     Dosage: SEVENTH INFUSION WAS USING 5 VIALS
     Route: 042
     Dates: start: 20160908
  3. REMICADE [Suspect]
     Active Substance: INFLIXIMAB
     Indication: CROHN^S DISEASE
     Dosage: 6 INFUSIONS USING 3 VIALS
     Route: 042
     Dates: start: 20160104
  4. REMICADE [Suspect]
     Active Substance: INFLIXIMAB
     Indication: CROHN^S DISEASE
     Route: 042
  5. IMURAN [Concomitant]
     Active Substance: AZATHIOPRINE
     Route: 065

REACTIONS (12)
  - Off label use [Unknown]
  - Infection [Unknown]
  - Proctocolectomy [Unknown]
  - Candida infection [Unknown]
  - Drug effect incomplete [Unknown]
  - Spider vein [Unknown]
  - Crohn^s disease [Unknown]
  - Post procedural haemorrhage [Unknown]
  - Anal fissure [Unknown]
  - Urinary tract infection [Recovered/Resolved]
  - Post procedural infection [Unknown]
  - Drug prescribing error [Unknown]

NARRATIVE: CASE EVENT DATE: 2016
